FAERS Safety Report 5823160-4 (Version None)
Quarter: 2008Q3

REPORT INFORMATION
  Report Type: 
  Country: None (occurrence: None)
  Receive Date: 20080725
  Receipt Date: 20080716
  Transmission Date: 20090109
  Serious: Yes (Other)
  Sender: FDA-Public Use
  Company Number: PHHY2008IL14248

PATIENT
  Sex: Female

DRUGS (4)
  1. ZOLEDRONIC ACID [Suspect]
  2. ATORVASTATIN CALCIUM [Concomitant]
  3. BROTIZOLAM [Concomitant]
  4. ASPIRIN [Concomitant]

REACTIONS (1)
  - SYNCOPE [None]
